FAERS Safety Report 13012004 (Version 1)
Quarter: 2016Q4

REPORT INFORMATION
  Report Type: Other
  Country: JP (occurrence: JP)
  Receive Date: 20161209
  Receipt Date: 20161209
  Transmission Date: 20170207
  Serious: Yes (Hospitalization)
  Sender: FDA-Public Use
  Company Number: JP-LUPIN PHARMACEUTICALS INC.-2016-05395

PATIENT
  Age: 48 Year
  Sex: Female

DRUGS (8)
  1. VITAMIN B6 [Concomitant]
     Active Substance: PYRIDOXINE HYDROCHLORIDE
     Indication: PAPULE
  2. VITAMIN B2 [Concomitant]
     Active Substance: RIBOFLAVIN
     Indication: PAPULE
  3. MINOCYCLINE [Suspect]
     Active Substance: MINOCYCLINE\MINOCYCLINE HYDROCHLORIDE
     Indication: ERYTHEMA
     Route: 048
  4. MINOCYCLINE [Suspect]
     Active Substance: MINOCYCLINE\MINOCYCLINE HYDROCHLORIDE
     Indication: PAPULE
  5. OLOPATADINE [Concomitant]
     Active Substance: OLOPATADINE
     Indication: ERYTHEMA
     Route: 048
  6. VITAMIN B6 [Concomitant]
     Active Substance: PYRIDOXINE HYDROCHLORIDE
     Indication: ERYTHEMA
     Route: 048
  7. OLOPATADINE [Concomitant]
     Active Substance: OLOPATADINE
     Indication: PAPULE
  8. VITAMIN B2 [Concomitant]
     Active Substance: RIBOFLAVIN
     Indication: ERYTHEMA
     Route: 048

REACTIONS (1)
  - Eosinophilic pneumonia acute [Recovering/Resolving]
